FAERS Safety Report 4504456-5 (Version None)
Quarter: 2004Q4

REPORT INFORMATION
  Report Type: 
  Country: None (occurrence: None)
  Receive Date: 20041118
  Receipt Date: 20041020
  Transmission Date: 20050328
  Serious: Yes (Death, Hospitalization)
  Sender: FDA-Public Use
  Company Number: US-MERCK-0410USA03146

PATIENT
  Age: 58 Year
  Sex: Male

DRUGS (8)
  1. VIOXX [Suspect]
     Indication: ARTHRITIS
     Route: 048
     Dates: start: 20020301, end: 20040101
  2. COUMADIN [Concomitant]
     Route: 065
  3. LASIX [Concomitant]
     Route: 065
  4. DIGITEK [Concomitant]
     Route: 065
  5. ELAVIL [Concomitant]
     Route: 065
  6. LIPITOR [Concomitant]
     Route: 065
  7. COMBIVENT [Concomitant]
     Route: 065
  8. ADVAIR [Concomitant]
     Route: 065

REACTIONS (7)
  - DIZZINESS [None]
  - DYSPNOEA [None]
  - FATIGUE [None]
  - LOSS OF CONSCIOUSNESS [None]
  - LUNG DISORDER [None]
  - MYOCARDIAL INFARCTION [None]
  - SYNCOPE [None]
